FAERS Safety Report 10800243 (Version 2)
Quarter: 2015Q1

REPORT INFORMATION
  Report Type: Spontaneous
  Country: ZA (occurrence: ZA)
  Receive Date: 20150216
  Receipt Date: 20150329
  Transmission Date: 20150721
  Serious: Yes (Hospitalization, Other)
  Sender: FDA-Public Use
  Company Number: PHHY2015ZA017129

PATIENT
  Age: 78 Year
  Sex: Female
  Weight: 70.6 kg

DRUGS (5)
  1. CALTRATE WITH VITAMIN D [Concomitant]
     Active Substance: CALCIUM CARBONATE\VITAMIN D
     Indication: OSTEOPENIA
     Dosage: UNK
     Route: 048
     Dates: start: 2012
  2. ACLASTA [Suspect]
     Active Substance: ZOLEDRONIC ACID
     Indication: HIP FRACTURE
  3. CRESTOR [Concomitant]
     Active Substance: ROSUVASTATIN CALCIUM
     Indication: DYSLIPIDAEMIA
     Dosage: 10 G, UNK
     Route: 048
     Dates: start: 2010
  4. EUTHYROX [Concomitant]
     Active Substance: LEVOTHYROXINE SODIUM
     Indication: HYPOTHYROIDISM
     Dosage: 100 G, UNK
     Route: 048
     Dates: start: 2005
  5. ACLASTA [Suspect]
     Active Substance: ZOLEDRONIC ACID
     Indication: OSTEOPOROSIS
     Dosage: 5 G, UNK
     Route: 042
     Dates: start: 20150205

REACTIONS (12)
  - Urinary incontinence [Recovered/Resolved]
  - Troponin T increased [Unknown]
  - Myocardial necrosis marker increased [Recovered/Resolved]
  - Blood albumin decreased [Unknown]
  - Faecal incontinence [Recovered/Resolved]
  - Blood creatine phosphokinase increased [Recovering/Resolving]
  - Vomiting [Recovered/Resolved]
  - Blood calcium decreased [Unknown]
  - Muscular weakness [Recovered/Resolved]
  - Pain [Recovered/Resolved]
  - Pulmonary embolism [Recovered/Resolved]
  - Fibrin D dimer increased [Unknown]

NARRATIVE: CASE EVENT DATE: 20150207
